FAERS Safety Report 25024206 (Version 2)
Quarter: 2025Q2

REPORT INFORMATION
  Report Type: Spontaneous
  Country: JP (occurrence: JP)
  Receive Date: 20250228
  Receipt Date: 20250417
  Transmission Date: 20250716
  Serious: Yes (Other)
  Sender: BAYER
  Company Number: JP-BAYER-2025A028546

PATIENT
  Sex: Female

DRUGS (7)
  1. ADEMPAS [Suspect]
     Active Substance: RIOCIGUAT
     Indication: Pulmonary arterial hypertension
     Dosage: 1.5 MG, TID
     Route: 048
     Dates: start: 20240827, end: 20250114
  2. ADEMPAS [Suspect]
     Active Substance: RIOCIGUAT
     Indication: Right-to-left cardiac shunt
  3. MACITENTAN [Concomitant]
     Active Substance: MACITENTAN
  4. TREPROSTINIL [Concomitant]
     Active Substance: TREPROSTINIL
     Route: 058
  5. FUROSEMIDE [Concomitant]
     Active Substance: FUROSEMIDE
  6. SPIRONOLACTONE [Concomitant]
     Active Substance: SPIRONOLACTONE
  7. BISOPROLOL [Concomitant]
     Active Substance: BISOPROLOL

REACTIONS (2)
  - Arrhythmia [Not Recovered/Not Resolved]
  - Atrial tachycardia [Not Recovered/Not Resolved]

NARRATIVE: CASE EVENT DATE: 20240827
